FAERS Safety Report 6523615-3 (Version None)
Quarter: 2009Q4

REPORT INFORMATION
  Report Type: 
  Country: None (occurrence: None)
  Receive Date: 20091231
  Receipt Date: 20091228
  Transmission Date: 20100525
  Serious: Yes (Death, Hospitalization)
  Sender: FDA-Public Use
  Company Number: PHHY2009CN58128

PATIENT
  Age: 50 Year
  Sex: Male

DRUGS (4)
  1. GLEEVEC [Suspect]
     Indication: CHRONIC MYELOID LEUKAEMIA
     Dosage: 400 MG/DAY
     Dates: start: 20080301, end: 20080401
  2. GLEEVEC [Suspect]
     Dosage: 600-800 MG/DAY
     Dates: start: 20080401, end: 20080501
  3. GLEEVEC [Suspect]
     Dosage: 500 MG/DAY
     Dates: start: 20080501, end: 20080507
  4. GLEEVEC [Suspect]
     Dosage: 400 MG/DAY
     Dates: start: 20080507, end: 20080511

REACTIONS (25)
  - ABDOMINAL DISTENSION [None]
  - ANAEMIA [None]
  - ASCITES [None]
  - BONE PAIN [None]
  - CHEST DISCOMFORT [None]
  - CHEST PAIN [None]
  - CHRONIC MYELOID LEUKAEMIA TRANSFORMATION [None]
  - COUGH [None]
  - CYANOSIS [None]
  - DYSPNOEA [None]
  - FACE OEDEMA [None]
  - FATIGUE [None]
  - FLUID RETENTION [None]
  - HAEMORRHAGE [None]
  - MARROW HYPERPLASIA [None]
  - OEDEMA PERIPHERAL [None]
  - PAIN [None]
  - PERICARDIAL EFFUSION [None]
  - PLEURAL EFFUSION [None]
  - PNEUMONIA [None]
  - PRODUCTIVE COUGH [None]
  - PYREXIA [None]
  - RALES [None]
  - RESPIRATORY TRACT INFLAMMATION [None]
  - WHEEZING [None]
